FAERS Safety Report 5072947-7 (Version None)
Quarter: 2006Q3

REPORT INFORMATION
  Report Type: 
  Country: None (occurrence: None)
  Receive Date: 20060802
  Receipt Date: 20060721
  Transmission Date: 20061208
  Serious: Yes (Other)
  Sender: FDA-Public Use
  Company Number: 2006VX000646

PATIENT
  Age: 65 Year
  Sex: Male
  Weight: 63 kg

DRUGS (5)
  1. TASMAR [Suspect]
     Indication: PARKINSON'S DISEASE
     Dosage: 300 MG; QD; PO
     Route: 048
     Dates: start: 20060313, end: 20060619
  2. AMITRIPTYLINE HCL [Concomitant]
  3. APOMORPHINE [Concomitant]
  4. ASPIRIN [Concomitant]
  5. MADOPAR [Concomitant]

REACTIONS (4)
  - ALANINE AMINOTRANSFERASE INCREASED [None]
  - ASPARTATE AMINOTRANSFERASE INCREASED [None]
  - BLOOD ALKALINE PHOSPHATASE INCREASED [None]
  - THERAPY NON-RESPONDER [None]
